FAERS Safety Report 13897052 (Version 1)
Quarter: 2017Q3

REPORT INFORMATION
  Report Type: Spontaneous
  Country: US (occurrence: None)
  Receive Date: 20170822
  Receipt Date: 20170822
  Transmission Date: 20171127
  Serious: No
  Sender: FDA-Public Use
  Company Number: None

PATIENT
  Age: 18 Year
  Sex: Female

DRUGS (1)
  1. MICROGESTIN FE 1/20 [Suspect]
     Active Substance: ETHINYL ESTRADIOL\NORETHINDRONE ACETATE
     Dates: start: 20141007, end: 20141022

REACTIONS (9)
  - Cholestasis [None]
  - Nausea [None]
  - Aspartate aminotransferase increased [None]
  - Alanine aminotransferase increased [None]
  - Pruritus [None]
  - Hepatic enzyme increased [None]
  - Jaundice [None]
  - Blood alkaline phosphatase increased [None]
  - Drug-induced liver injury [None]

NARRATIVE: CASE EVENT DATE: 20141106
